FAERS Safety Report 8201345-X (Version None)
Quarter: 2012Q1

REPORT INFORMATION
  Report Type: 
  Country: None (occurrence: None)
  Receive Date: 20120312
  Receipt Date: 20120306
  Transmission Date: 20120608
  Serious: Yes (Other)
  Sender: FDA-Public Use
  Company Number: BE-PFIZER INC-2012060342

PATIENT
  Age: 35 Year
  Sex: Female
  Weight: 52 kg

DRUGS (1)
  1. ARMODAFINIL [Suspect]
     Indication: SYSTEMIC CANDIDA
     Dosage: 200 MG, UNK
     Route: 048
     Dates: start: 20110303, end: 20110428

REACTIONS (2)
  - CHOLESTASIS OF PREGNANCY [None]
  - GESTATIONAL DIABETES [None]
